FAERS Safety Report 7123581-6 (Version None)
Quarter: 2010Q4

REPORT INFORMATION
  Report Type: 
  Country: None (occurrence: None)
  Receive Date: 20101125
  Receipt Date: 20101118
  Transmission Date: 20110411
  Serious: Yes (Other)
  Sender: FDA-Public Use
  Company Number: AU-NOVOPROD-315223

PATIENT
  Sex: Female
  Weight: 143 kg

DRUGS (1)
  1. NOVORAPID [Suspect]
     Indication: TYPE 2 DIABETES MELLITUS
     Route: 064

REACTIONS (2)
  - ABORTION SPONTANEOUS [None]
  - DRUG EXPOSURE DURING PREGNANCY [None]
